FAERS Safety Report 7850440-3 (Version None)
Quarter: 2011Q4

REPORT INFORMATION
  Report Type: 
  Country: None (occurrence: None)
  Receive Date: 20111026
  Receipt Date: 20111026
  Transmission Date: 20120403
  Serious: Yes (Hospitalization)
  Sender: FDA-Public Use
  Company Number: None

PATIENT
  Sex: Male
  Weight: 23 kg

DRUGS (3)
  1. LAMOTRIGINE [Suspect]
     Indication: COMPLEX PARTIAL SEIZURES
     Dosage: 25 MG
     Route: 048
     Dates: start: 20101222, end: 20110110
  2. DEPAKOTE [Concomitant]
     Route: 048
  3. TOPIRAMATE [Concomitant]
     Route: 048

REACTIONS (2)
  - ERYTHEMA INFECTIOSUM [None]
  - TOXIC EPIDERMAL NECROLYSIS [None]
